FAERS Safety Report 23323409 (Version 4)
Quarter: 2025Q4

REPORT INFORMATION
  Report Type: Spontaneous
  Country: US (occurrence: US)
  Receive Date: 20231220
  Receipt Date: 20251211
  Transmission Date: 20260117
  Serious: No
  Sender: ROCHE
  Company Number: US-ROCHE-3418123

PATIENT
  Age: 65 Year
  Sex: Female
  Weight: 86.18 kg

DRUGS (1)
  1. RITUXAN [Suspect]
     Active Substance: RITUXIMAB
     Indication: Rheumatoid arthritis
     Dosage: ONGOING: UNKNOWN
     Route: 041
     Dates: start: 2021, end: 202202

REACTIONS (8)
  - Oral discomfort [Unknown]
  - Malaise [Unknown]
  - Off label use [Unknown]
  - Oral disorder [Not Recovered/Not Resolved]
  - Sensory disturbance [Not Recovered/Not Resolved]
  - Dental caries [Unknown]
  - Drug ineffective [Unknown]
  - Feeling abnormal [Unknown]

NARRATIVE: CASE EVENT DATE: 20220201
